FAERS Safety Report 13003924 (Version 1)
Quarter: 2016Q4

REPORT INFORMATION
  Report Type: Spontaneous
  Country: US (occurrence: US)
  Receive Date: 20161206
  Receipt Date: 20161206
  Transmission Date: 20170207
  Serious: Yes (Hospitalization)
  Sender: FDA-Public Use
  Company Number: US-SMITH AND NEPHEW, INC-2016SMT01058

PATIENT
  Sex: Male

DRUGS (1)
  1. REGRANEX [Suspect]
     Active Substance: BECAPLERMIN
     Indication: WOUND

REACTIONS (3)
  - Fall [Recovered/Resolved]
  - Off label use [Recovered/Resolved]
  - Neck injury [Unknown]
